FAERS Safety Report 9342904 (Version 1)
Quarter: 2013Q2

REPORT INFORMATION
  Report Type: Spontaneous
  Country: CN (occurrence: CN)
  Receive Date: 20130611
  Receipt Date: 20130611
  Transmission Date: 20140414
  Serious: Yes (Hospitalization)
  Sender: FDA-Public Use
  Company Number: CN-GLAXOSMITHKLINE-B0898506A

PATIENT
  Age: 1 Year
  Sex: Male
  Weight: 14 kg

DRUGS (1)
  1. CEFUROXIME [Suspect]
     Indication: PNEUMONIA
     Dosage: .7G TWICE PER DAY
     Route: 042
     Dates: start: 20120801, end: 20120801

REACTIONS (6)
  - Urticaria [Recovering/Resolving]
  - Pyrexia [Recovering/Resolving]
  - Chills [Recovering/Resolving]
  - Dyspnoea [Recovering/Resolving]
  - Cyanosis [Recovering/Resolving]
  - Rash [Recovering/Resolving]
